FAERS Safety Report 8913040 (Version 2)
Quarter: 2012Q4

REPORT INFORMATION
  Report Type: Spontaneous
  Country: US (occurrence: None)
  Receive Date: 20121113
  Receipt Date: 20121127
  Transmission Date: 20130627
  Serious: Yes (Hospitalization, Other)
  Sender: FDA-Public Use
  Company Number: 2012-000216

PATIENT
  Age: 62 Year
  Sex: Female

DRUGS (14)
  1. ACTONEL [Suspect]
     Indication: OSTEOPOROSIS
     Dosage: dosage / regimen unknown, Oral
     Route: 048
     Dates: start: 20020805, end: 20030502
  2. FOSAMAX [Suspect]
     Indication: OSTEOPOROSIS
     Dosage: dosage / regimen unknown, Unknown
     Route: 048
     Dates: start: 200011, end: 20010907
  3. ALENDRONATE [Suspect]
     Indication: OSTEOPOROSIS
     Dosage: dosage / regimen unknown, Oral
     Route: 048
     Dates: start: 20090409, end: 20110124
  4. FOSAMAX [Suspect]
     Route: 048
     Dates: start: 20061026, end: 20090409
  5. ESTRACE CREAM (ESTRADIOL) [Concomitant]
  6. EVISTA (RALOXIFENE HYDROCHLORIDE) [Concomitant]
  7. SYNTHROID (LEVOTHYROXINE SODIUM) [Concomitant]
  8. AMBIEN (ZOLPIDEM TARTRATE) [Concomitant]
  9. EFFEXOR XR (VENLAFAXINE HYDROCHLORIDE) (75 MILLIGRAM, CAPSULE) (VENLAFAXINE HYDROCHLORIDE) [Concomitant]
  10. PROZAC (FLUOXETINE HYDROCHLORIDE) [Concomitant]
  11. PROTONIX (PANTOPRAZOLE SODIUM SESQUIHYDRATE) CALCIUM (CALCIUM) [Concomitant]
  12. VITAMIN D	/00318501/ (COLECALCIFEROL) [Concomitant]
  13. ADVAIR (FLUTICASONE PROPIONATE, SALMETEROL XINAFOATE) [Concomitant]
  14. ALBUTEROL	/00139501/ (SALBUTAMOL) [Concomitant]

REACTIONS (14)
  - Femur fracture [None]
  - Pathological fracture [None]
  - Groin pain [None]
  - Stress fracture [None]
  - Low turnover osteopathy [None]
  - Bone disorder [None]
  - Pain [None]
  - Multiple fractures [None]
  - Impaired healing [None]
  - Fracture displacement [None]
  - Fracture nonunion [None]
  - Gastrooesophageal reflux disease [None]
  - Gastritis [None]
  - Gastric ulcer [None]
